FAERS Safety Report 8786424 (Version 1)
Quarter: 2012Q4

REPORT INFORMATION
  Report Type: 
  Country: CN (occurrence: CN)
  Receive Date: 20120914
  Receipt Date: 20120914
  Transmission Date: 20130627
  Serious: Yes (Other)
  Sender: FDA-Public Use
  Company Number: CN-PFIZER INC-2012224475

PATIENT
  Age: 60 Year
  Sex: Female
  Weight: 50 kg

DRUGS (1)
  1. TAZOCIN [Suspect]
     Indication: ANTI-INFECTIVE THERAPY
     Dosage: 4.5 g, 1x/day
     Route: 041
     Dates: start: 20110810, end: 20110810

REACTIONS (9)
  - Anaphylactic shock [Recovered/Resolved]
  - Temperature intolerance [Recovered/Resolved]
  - Muscle spasms [Recovered/Resolved]
  - Cyanosis [Recovered/Resolved]
  - Flushing [Recovered/Resolved]
  - Ocular hyperaemia [Recovered/Resolved]
  - Tachypnoea [Recovered/Resolved]
  - Blood pressure immeasurable [Recovered/Resolved]
  - Respiratory failure [Recovered/Resolved]
